FAERS Safety Report 8831677 (Version 1)
Quarter: 2012Q4

REPORT INFORMATION
  Report Type: 
  Country: US (occurrence: US)
  Receive Date: 20121009
  Receipt Date: 20121009
  Transmission Date: 20130627
  Serious: No
  Sender: FDA-Public Use
  Company Number: US-BAYER-2012-093469

PATIENT
  Sex: Female

DRUGS (2)
  1. AVELOX [Suspect]
     Indication: SINUSITIS
     Dosage: 400 mg, QD
     Route: 048
     Dates: start: 20120817
  2. FLUDROCORTISONE [Concomitant]
     Indication: HYPOTENSION

REACTIONS (3)
  - Hypotension [None]
  - Hot flush [None]
  - Hyperhidrosis [None]
